FAERS Safety Report 5077064-8 (Version None)
Quarter: 2006Q3

REPORT INFORMATION
  Report Type: 
  Country: None (occurrence: None)
  Receive Date: 20060810
  Receipt Date: 20031218
  Transmission Date: 20061208
  Serious: No
  Sender: FDA-Public Use
  Company Number: US-GLAXOSMITHKLINE-A0492166A

PATIENT
  Sex: Male

DRUGS (7)
  1. PAXIL [Suspect]
     Indication: DRUG USE FOR UNKNOWN INDICATION
     Dosage: 40MG PER DAY
     Route: 048
  2. ATIVAN [Concomitant]
  3. FELODIPINE [Concomitant]
  4. LABETALOL HCL [Concomitant]
  5. ASPIRIN [Concomitant]
  6. FLONASE [Concomitant]
  7. RABEPRAZOLE SODIUM [Concomitant]

REACTIONS (1)
  - DRUG WITHDRAWAL SYNDROME [None]
